FAERS Safety Report 12984090 (Version 1)
Quarter: 2016Q4

REPORT INFORMATION
  Report Type: Spontaneous
  Country: DE (occurrence: DE)
  Receive Date: 20161129
  Receipt Date: 20161129
  Transmission Date: 20170207
  Serious: Yes (Other)
  Sender: FDA-Public Use
  Company Number: DE-MEDA-2016110057

PATIENT
  Age: 90 Year
  Sex: Female

DRUGS (10)
  1. VALDOXAN [Suspect]
     Active Substance: AGOMELATINE
     Route: 048
     Dates: start: 20160808, end: 20160830
  2. METOPROLOL 23.75 MG [Concomitant]
     Route: 048
  3. VALSARTAN 40 MG [Concomitant]
     Route: 048
  4. ARIPIPRAZOLE 5 MG [Suspect]
     Active Substance: ARIPIPRAZOLE
     Route: 048
     Dates: start: 20160620
  5. EUTHYROX 0.075 MG [Concomitant]
     Route: 048
  6. XARELTO [Concomitant]
     Active Substance: RIVAROXABAN
     Route: 048
  7. KALINOR 600 MG [Concomitant]
     Route: 048
     Dates: start: 20160605, end: 20160901
  8. TORASEMIDE 10MG [Suspect]
     Active Substance: TORSEMIDE
     Route: 048
     Dates: start: 20160802, end: 20160901
  9. PANTOPRAZOLE 40 MG [Concomitant]
     Active Substance: PANTOPRAZOLE SODIUM
     Route: 048
  10. FERRO SANOL 200 MG [Concomitant]
     Route: 048

REACTIONS (1)
  - Transaminases increased [Recovering/Resolving]

NARRATIVE: CASE EVENT DATE: 20160830
